FAERS Safety Report 17864101 (Version 3)
Quarter: 2022Q2

REPORT INFORMATION
  Report Type: Spontaneous
  Country: SK (occurrence: SK)
  Receive Date: 20200605
  Receipt Date: 20220503
  Transmission Date: 20220721
  Serious: Yes (Life-Threatening, Hospitalization, Other)
  Sender: FDA-Public Use
  Company Number: None

PATIENT
  Age: 6 Year
  Sex: Female

DRUGS (19)
  1. VANCOMYCIN [Suspect]
     Active Substance: VANCOMYCIN
     Indication: Antibiotic therapy
     Route: 065
  2. AMIKACIN [Suspect]
     Active Substance: AMIKACIN
     Indication: Febrile neutropenia
     Dosage: IN COMBINATION,ADDED SUBSEQUENTLY ON DAY 15
     Route: 065
  3. AMPHOTERICIN B [Suspect]
     Active Substance: AMPHOTERICIN B
     Indication: Rhinocerebral mucormycosis
     Dosage: 10 MG/KG, QD
  4. CYCLOPHOSPHAMIDE [Suspect]
     Active Substance: CYCLOPHOSPHAMIDE
     Indication: Product used for unknown indication
     Route: 065
  5. MEROPENEM [Suspect]
     Active Substance: MEROPENEM
     Indication: Antibiotic therapy
     Route: 065
  6. PIPERACILLIN SODIUM\TAZOBACTAM SODIUM [Suspect]
     Active Substance: PIPERACILLIN SODIUM\TAZOBACTAM SODIUM
     Indication: Febrile neutropenia
     Route: 065
  7. FLUCONAZOLE [Suspect]
     Active Substance: FLUCONAZOLE
     Indication: Antifungal prophylaxis
     Route: 065
  8. PREDNISONE [Suspect]
     Active Substance: PREDNISONE
     Indication: Acute lymphocytic leukaemia
     Route: 065
  9. RIBAVIRIN [Suspect]
     Active Substance: RIBAVIRIN
     Indication: Respiratory syncytial virus infection
     Dosage: WAS ADDED TO THE TREATMENT
  10. DAUNORUBICIN [Suspect]
     Active Substance: DAUNORUBICIN
     Indication: Product used for unknown indication
     Route: 065
  11. VINCRISTINE [Suspect]
     Active Substance: VINCRISTINE
     Indication: Product used for unknown indication
     Route: 065
  12. MERCAPTOPURINE [Suspect]
     Active Substance: MERCAPTOPURINE
     Indication: Acute lymphocytic leukaemia
     Route: 065
  13. PEGASPARGASE [Suspect]
     Active Substance: PEGASPARGASE
     Indication: Product used for unknown indication
     Route: 065
  14. LEUCOVORIN CALCIUM [Suspect]
     Active Substance: LEUCOVORIN CALCIUM
     Indication: Product used for unknown indication
     Route: 065
  15. CYTARABINE [Suspect]
     Active Substance: CYTARABINE
     Indication: Product used for unknown indication
     Route: 065
  16. METHOTREXATE [Suspect]
     Active Substance: METHOTREXATE
     Indication: B precursor type acute leukaemia
     Route: 065
  17. POSACONAZOLE [Concomitant]
     Active Substance: POSACONAZOLE
     Indication: Mucormycosis
     Route: 065
  18. RIBAVIRIN [Concomitant]
     Active Substance: RIBAVIRIN
     Dosage: WAS ADDED TO THE TREATMENT
  19. CASPOFUNGIN [Concomitant]
     Active Substance: CASPOFUNGIN

REACTIONS (7)
  - Overgrowth fungal [Recovering/Resolving]
  - Rhinocerebral mucormycosis [Recovered/Resolved]
  - Mucormycosis [Recovered/Resolved]
  - Chills [Recovered/Resolved]
  - Pseudomonal sepsis [Recovered/Resolved]
  - Febrile neutropenia [Recovering/Resolving]
  - Tremor [Recovered/Resolved]
